FAERS Safety Report 6914548-9 (Version None)
Quarter: 2010Q3

REPORT INFORMATION
  Report Type: 
  Country: None (occurrence: None)
  Receive Date: 20100809
  Receipt Date: 20100729
  Transmission Date: 20110219
  Serious: No
  Sender: FDA-Public Use
  Company Number: US-JNJFOC-20100800223

PATIENT
  Sex: Male
  Weight: 90.72 kg

DRUGS (8)
  1. FENTANYL CITRATE [Suspect]
     Indication: NEUROPATHY PERIPHERAL
     Route: 062
  2. FENTANYL CITRATE [Suspect]
     Route: 062
  3. VYTORIN [Concomitant]
     Indication: BLOOD CHOLESTEROL
     Route: 048
  4. PLAVIX [Concomitant]
     Indication: CARDIAC DISORDER
     Route: 048
  5. OXYCODONE HCL [Concomitant]
     Indication: PAIN
     Route: 048
  6. ZOLPIDEM [Concomitant]
     Indication: SLEEP DISORDER
     Route: 048
  7. AMITIZA [Concomitant]
     Indication: GASTROINTESTINAL DISORDER
     Route: 048
  8. LYRICA [Concomitant]
     Indication: PAIN
     Route: 048

REACTIONS (2)
  - INADEQUATE ANALGESIA [None]
  - WRONG TECHNIQUE IN DRUG USAGE PROCESS [None]
